FAERS Safety Report 24647210 (Version 1)
Quarter: 2024Q4

REPORT INFORMATION
  Report Type: Spontaneous
  Country: FR (occurrence: FR)
  Receive Date: 20241121
  Receipt Date: 20241121
  Transmission Date: 20250114
  Serious: Yes (Death, Hospitalization, Other)
  Sender: TAKEDA
  Company Number: None

PATIENT
  Age: 15 Year
  Sex: Male
  Weight: 36 kg

DRUGS (5)
  1. ENTYVIO [Suspect]
     Active Substance: VEDOLIZUMAB
     Indication: Gastrointestinal disorder
     Dosage: 300 MILLIGRAM
  2. OLUMIANT [Suspect]
     Active Substance: BARICITINIB
     Indication: Gastrointestinal disorder
     Dosage: 1 MILLIGRAM, Q12H
     Dates: start: 20211129, end: 202403
  3. INFLIXIMAB [Suspect]
     Active Substance: INFLIXIMAB
     Indication: Gastrointestinal disorder
     Dosage: 300 MILLIGRAM
  4. RUXOLITINIB [Suspect]
     Active Substance: RUXOLITINIB
     Indication: Immune reconstitution inflammatory syndrome
     Dosage: UNK
  5. SOLU-MEDROL [Concomitant]
     Active Substance: METHYLPREDNISOLONE SODIUM SUCCINATE
     Dosage: UNK

REACTIONS (2)
  - Bronchopulmonary aspergillosis [Not Recovered/Not Resolved]
  - Condition aggravated [Fatal]

NARRATIVE: CASE EVENT DATE: 20240502
